FAERS Safety Report 5243840-1 (Version None)
Quarter: 2007Q1

REPORT INFORMATION
  Report Type: 
  Country: None (occurrence: None)
  Receive Date: 20070220
  Receipt Date: 20070220
  Transmission Date: 20070707
  Serious: No
  Sender: FDA-Public Use
  Company Number: None

PATIENT

DRUGS (1)
  1. TYSABRI [Suspect]
     Indication: MULTIPLE SCLEROSIS RELAPSE
     Dosage: 300 MG MONTHLY IV
     Route: 042

REACTIONS (1)
  - TREATMENT NONCOMPLIANCE [None]
